FAERS Safety Report 6113831-7 (Version None)
Quarter: 2009Q1

REPORT INFORMATION
  Report Type: 
  Country: None (occurrence: None)
  Receive Date: 20090312
  Receipt Date: 20090310
  Transmission Date: 20090719
  Serious: Yes (Hospitalization, Other)
  Sender: FDA-Public Use
  Company Number: CA-ABBOTT-08P-028-0487301-00

PATIENT
  Sex: Male

DRUGS (2)
  1. HUMIRA [Suspect]
     Indication: CROHN'S DISEASE
     Route: 058
     Dates: start: 20081009, end: 20081023
  2. HUMIRA [Suspect]

REACTIONS (3)
  - FISTULA [None]
  - INTESTINAL OBSTRUCTION [None]
  - RECTAL ABSCESS [None]
